FAERS Safety Report 17125544 (Version 1)
Quarter: 2019Q4

REPORT INFORMATION
  Report Type: Spontaneous
  Country: US (occurrence: US)
  Receive Date: 20191207
  Receipt Date: 20191207
  Transmission Date: 20200122
  Serious: No
  Sender: FDA-Public Use
  Company Number: US-009507513-1912USA002599

PATIENT
  Age: 45 Year
  Sex: Female

DRUGS (1)
  1. BELSOMRA [Suspect]
     Active Substance: SUVOREXANT
     Indication: STIFF PERSON SYNDROME
     Dosage: TOTAL DOSE/DAY: 60MG (20MG, THREE TIME PER DAY)
     Route: 048
     Dates: start: 2018

REACTIONS (3)
  - Product use in unapproved indication [Unknown]
  - Product prescribing issue [Unknown]
  - Therapeutic product effect incomplete [Unknown]

NARRATIVE: CASE EVENT DATE: 2018
